FAERS Safety Report 8587642 (Version 3)
Quarter: 2012Q4

REPORT INFORMATION
  Report Type: 
  Country: US (occurrence: US)
  Receive Date: 20120531
  Receipt Date: 20120905
  Transmission Date: 20130627
  Serious: Yes (Hospitalization)
  Sender: FDA-Public Use
  Company Number: PHHO2012US008105

PATIENT
  Age: 50 Year
  Sex: Male

DRUGS (26)
  1. NEORAL [Suspect]
     Indication: RENAL TRANSPLANT
     Dosage: 375 mg, UNK
     Route: 048
     Dates: start: 20060924
  2. PREDNISONE [Suspect]
     Dosage: 10 mg, UNK
     Dates: start: 20070725
  3. CELLCEPT [Suspect]
     Indication: RENAL TRANSPLANT
     Dosage: 1000 mg, UNK
     Dates: start: 20070810
  4. ADVAIR DISKUS [Concomitant]
     Dosage: UNK
     Dates: start: 20111013
  5. ALBUTEROL [Concomitant]
     Dosage: UNK
     Dates: start: 20111013
  6. NORVASC [Concomitant]
     Dosage: UNK
     Dates: start: 20091019
  7. ASPIRIN [Concomitant]
     Dosage: UNK
     Dates: start: 20080902
  8. CALCITROL [Concomitant]
     Dosage: UNK
     Dates: start: 20081114
  9. COREG [Concomitant]
     Dosage: UNK
     Dates: start: 20111026
  10. DRISDOL [Concomitant]
     Dosage: UNK
     Dates: start: 20090520
  11. HYDRALAZINE [Concomitant]
     Dosage: UNK
     Dates: start: 20090202
  12. LANTUS [Concomitant]
     Dosage: UNK
     Dates: start: 20070725
  13. INSULIN [Concomitant]
     Dosage: UNK
     Dates: start: 20070725
  14. IMDUR [Concomitant]
     Dosage: UNK
     Dates: start: 20111007
  15. ISODRIL [Concomitant]
     Dosage: UNK
     Dates: start: 20111025
  16. OMEGA-3 FATTY ACIDS [Concomitant]
     Dosage: UNK
     Dates: start: 20080902
  17. ACETAMINOPHEN W/OXYCODONE [Concomitant]
     Dosage: UNK
     Dates: start: 20091210
  18. POTASSIUM CHLORIDE [Concomitant]
     Dosage: UNK
     Dates: start: 20091118
  19. PRAVACHOL [Concomitant]
     Dosage: UNK
     Dates: start: 20080902
  20. PRO-AIR [Concomitant]
     Dosage: UNK
     Dates: start: 20111013
  21. SEROQUEL [Concomitant]
     Dosage: UNK
     Dates: start: 20070715
  22. ZOLOFT [Concomitant]
     Dosage: UNK
     Dates: start: 20070725
  23. LIPITOR [Concomitant]
     Dosage: UNK
     Dates: start: 20080306
  24. FUROSEMIDE [Concomitant]
     Dosage: UNK
     Dates: start: 20070725
  25. MULTIVITAMINS [Concomitant]
     Dosage: UNK
     Dates: start: 20070727
  26. NIFEDIPINE [Concomitant]
     Dosage: UNK
     Dates: start: 20100331

REACTIONS (4)
  - Hemiparesis [Recovered/Resolved]
  - Cardiac failure congestive [Recovered/Resolved]
  - Muscle injury [Recovered/Resolved]
  - Groin pain [Recovered/Resolved]
